FAERS Safety Report 18577060 (Version 2)
Quarter: 2021Q2

REPORT INFORMATION
  Report Type: Spontaneous
  Country: US (occurrence: US)
  Receive Date: 20201203
  Receipt Date: 20210521
  Transmission Date: 20210717
  Serious: Yes (Hospitalization)
  Sender: FDA-Public Use
  Company Number: US-FRESENIUS KABI-FK202012807

PATIENT
  Age: 69 Year
  Sex: Female

DRUGS (16)
  1. NO DRUG NAME [Suspect]
     Active Substance: UNSPECIFIED INGREDIENT
     Indication: PLASMA CELL MYELOMA
     Dosage: BB2121 (AUTOLOGOUS T LYMPHOCYTES TRANSDUCED WITH ANTI?BCMA02 CAR LENTIVIRAL VECTOR) (INJECTION FOR I
     Route: 042
     Dates: start: 20201026, end: 20201026
  2. GABAPENTIN. [Concomitant]
     Active Substance: GABAPENTIN
     Indication: PRODUCT USED FOR UNKNOWN INDICATION
     Dosage: GABAPENTIN (100 MILLIGRAM, CAPSULES)
     Route: 048
  3. COLECALCIFEROL/CALCIUM CARBONATE [Concomitant]
     Active Substance: CALCIUM CARBONATE\CHOLECALCIFEROL
     Indication: PRODUCT USED FOR UNKNOWN INDICATION
     Dosage: ORAL CALCIUM CARBONATE?VITAMIN D3 (COLECALCIFEROL, CALCIUM CARBONATE) (TABLETS) (1500 MG (600 MG CAL
     Route: 048
  4. DOCUSATE SODIUM. [Concomitant]
     Active Substance: DOCUSATE SODIUM
     Indication: CONSTIPATION
     Dosage: DOCUSATE SODIUM (100 MILLIGRAM, CAPSULES)
     Route: 048
  5. VORICONAZOLE. [Concomitant]
     Active Substance: VORICONAZOLE
     Indication: BRONCHOPULMONARY ASPERGILLOSIS
     Route: 042
     Dates: start: 20201125, end: 20201126
  6. FLUDARABINE [Suspect]
     Active Substance: FLUDARABINE PHOSPHATE
     Indication: PLASMA CELL MYELOMA
     Route: 042
     Dates: start: 20201021, end: 20201023
  7. CITALOPRAM [Concomitant]
     Active Substance: CITALOPRAM HYDROBROMIDE
     Indication: PRODUCT USED FOR UNKNOWN INDICATION
     Dosage: CITALOPRAM (10 MILLIGRAM, TABLETS)
     Route: 048
  8. LEVOFLOXACIN. [Concomitant]
     Active Substance: LEVOFLOXACIN
     Indication: PRODUCT USED FOR UNKNOWN INDICATION
     Dosage: LEVOFLOXACIN (500 MILLIGRAM, TABLETS)
     Route: 048
  9. VORICONAZOLE. [Concomitant]
     Active Substance: VORICONAZOLE
     Route: 065
     Dates: start: 20201126, end: 20201204
  10. LORAZEPAM. [Concomitant]
     Active Substance: LORAZEPAM
     Indication: INSOMNIA
     Dosage: LORAZEPAM (1 MILLIGRAM, TABLETS)
     Route: 048
  11. ACICLOVIR [Concomitant]
     Active Substance: ACYCLOVIR
     Indication: PRODUCT USED FOR UNKNOWN INDICATION
     Dosage: ACYCLOVIR (400 MILLIGRAM, TABLETS) (800 MG, 2 IN 1 D),
     Route: 048
  12. AMITRIPTYLINE [Concomitant]
     Active Substance: AMITRIPTYLINE
     Indication: PRODUCT USED FOR UNKNOWN INDICATION
     Route: 048
  13. CYCLOPHOSPHAMIDE. [Suspect]
     Active Substance: CYCLOPHOSPHAMIDE
     Indication: PLASMA CELL MYELOMA
     Route: 042
     Dates: start: 20201021, end: 20201023
  14. MELATONIN [Concomitant]
     Active Substance: MELATONIN
     Indication: PRODUCT USED FOR UNKNOWN INDICATION
     Dosage: MELATONIN (10 MILLIGRAM, TABLETS)
     Route: 048
  15. VORICONAZOLE. [Concomitant]
     Active Substance: VORICONAZOLE
     Indication: PRODUCT USED FOR UNKNOWN INDICATION
     Route: 048
  16. PYRIDOXINE HYDROCHLORIDE/BIOTIN/FOLIC ACID/COLECALCIFEROL/CYANOCOBALAMIN/RIBOFLAVIN/PHYTOMENADIONE/C [Concomitant]
     Indication: PRODUCT USED FOR UNKNOWN INDICATION
     Dosage: MULTIVITAMIN?MINERALS (PYRIDOXINE HYDROCHLORIDE, BIOTIN, FOLIC ACID, COLECALCIFEROL, CYANOCOBALAMIN,
     Route: 048

REACTIONS (2)
  - Pneumonia [Recovered/Resolved]
  - Bronchopulmonary aspergillosis [Recovered/Resolved]

NARRATIVE: CASE EVENT DATE: 20201119
